FAERS Safety Report 16784482 (Version 1)
Quarter: 2019Q3

REPORT INFORMATION
  Report Type: Spontaneous
  Country: US (occurrence: US)
  Receive Date: 20190717
  Receipt Date: 20190717
  Transmission Date: 20191005
  Serious: No
  Sender: FDA-Public Use
  Company Number: None

PATIENT
  Age: 66 Year
  Sex: Female

DRUGS (3)
  1. ALIMTA [Suspect]
     Active Substance: PEMETREXED DISODIUM
     Dosage: ?          OTHER
     Route: 042
     Dates: start: 201904
  2. CARBOPLATIN. [Concomitant]
     Active Substance: CARBOPLATIN
  3. KEYTRUDA [Concomitant]
     Active Substance: PEMBROLIZUMAB

REACTIONS (1)
  - Anaemia [None]

NARRATIVE: CASE EVENT DATE: 20190717
